FAERS Safety Report 25590551 (Version 1)
Quarter: 2025Q3

REPORT INFORMATION
  Report Type: Spontaneous
  Country: US (occurrence: None)
  Receive Date: 20250721
  Receipt Date: 20250721
  Transmission Date: 20251021
  Serious: Yes (Hospitalization)
  Sender: FDA-CTU
  Company Number: None

PATIENT
  Age: 81 Year
  Sex: Male
  Weight: 81.8 kg

DRUGS (1)
  1. LUSPATERCEPT [Suspect]
     Active Substance: LUSPATERCEPT

REACTIONS (7)
  - Pneumonia [None]
  - Atelectasis [None]
  - Bacterial sepsis [None]
  - Heart rate increased [None]
  - Hypertension [None]
  - Respiratory rate increased [None]
  - Oxygen saturation decreased [None]

NARRATIVE: CASE EVENT DATE: 20250720
